FAERS Safety Report 8571943-2 (Version None)
Quarter: 2012Q2

REPORT INFORMATION
  Report Type: 
  Country: None (occurrence: None)
  Receive Date: 20120418
  Receipt Date: 20091208
  Transmission Date: 20120825
  Serious: Yes (Other)
  Sender: FDA-Public Use
  Company Number: PHHY2009US54636

PATIENT
  Age: 43 Year
  Sex: Female
  Weight: 121.5 kg

DRUGS (5)
  1. ELAVIL [Concomitant]
  2. RESTORIL [Concomitant]
  3. LOPID [Concomitant]
  4. PRILOSEC [Concomitant]
  5. DIOVAN HCT [Suspect]
     Indication: HYPERTENSION
     Dosage: 80/12.5 MG ONCE PER DAY, ORAL
     Route: 048
     Dates: start: 20091112, end: 20091201

REACTIONS (3)
  - DIABETES MELLITUS [None]
  - STOMATITIS [None]
  - PAIN [None]
